FAERS Safety Report 22962441 (Version 3)
Quarter: 2023Q4

REPORT INFORMATION
  Report Type: Spontaneous
  Country: US (occurrence: US)
  Receive Date: 20230920
  Receipt Date: 20231011
  Transmission Date: 20240109
  Serious: No
  Sender: FDA-Public Use
  Company Number: US-ELI_LILLY_AND_COMPANY-US202309010322

PATIENT
  Age: 69 Year
  Sex: Female

DRUGS (3)
  1. MOUNJARO [Suspect]
     Active Substance: TIRZEPATIDE
     Indication: Product used for unknown indication
     Dosage: UNK UNK, UNKNOWN
     Route: 065
  2. MOUNJARO [Suspect]
     Active Substance: TIRZEPATIDE
     Indication: Product used for unknown indication
     Dosage: 12.5 MG, UNKNOWN
     Route: 065
  3. MOUNJARO [Suspect]
     Active Substance: TIRZEPATIDE
     Dosage: 12.5 MG, UNKNOWN
     Route: 058

REACTIONS (11)
  - Product dose omission issue [Unknown]
  - Injection site erythema [Unknown]
  - Incorrect dose administered [Unknown]
  - Insomnia [Unknown]
  - Injection site mass [Unknown]
  - Hypertension [Recovered/Resolved]
  - Heart rate increased [Recovered/Resolved]
  - Anxiety [Unknown]
  - Pain [Unknown]
  - Depressed mood [Unknown]
  - Fear [Unknown]

NARRATIVE: CASE EVENT DATE: 20230929
